FAERS Safety Report 12079975 (Version 2)
Quarter: 2016Q1

REPORT INFORMATION
  Report Type: Spontaneous
  Country: BR (occurrence: BR)
  Receive Date: 20160216
  Receipt Date: 20160324
  Transmission Date: 20160526
  Serious: Yes (Other)
  Sender: FDA-Public Use
  Company Number: BR-JNJFOC-20160211114

PATIENT
  Age: 43 Year
  Sex: Female
  Weight: 60 kg

DRUGS (5)
  1. SIMPONI [Suspect]
     Active Substance: GOLIMUMAB
     Indication: RHEUMATOID ARTHRITIS
     Route: 058
     Dates: start: 20150901
  2. CYCLOBENZAPRINE [Concomitant]
     Active Substance: CYCLOBENZAPRINE
     Route: 065
  3. FAMOTIDINE. [Concomitant]
     Active Substance: FAMOTIDINE
     Route: 065
  4. DEPAKOTE [Concomitant]
     Active Substance: DIVALPROEX SODIUM
     Route: 065
  5. NIMESULIDE [Concomitant]
     Active Substance: NIMESULIDE
     Route: 065

REACTIONS (7)
  - Accidental exposure to product [Unknown]
  - Peripheral swelling [Unknown]
  - Underdose [Unknown]
  - Pain in extremity [Unknown]
  - Weight increased [Unknown]
  - Muscular weakness [Unknown]
  - Medication error [Unknown]

NARRATIVE: CASE EVENT DATE: 20160122
